FAERS Safety Report 13290946 (Version 3)
Quarter: 2017Q3

REPORT INFORMATION
  Report Type: Spontaneous
  Country: US (occurrence: US)
  Receive Date: 20170302
  Receipt Date: 20170721
  Transmission Date: 20171127
  Serious: Yes (Other)
  Sender: FDA-Public Use
  Company Number: US-WEST-WARD PHARMACEUTICALS CORP.-US-H14001-17-00592

PATIENT
  Age: 48 Year
  Sex: Male
  Weight: 99.88 kg

DRUGS (2)
  1. IBUPROFEN. [Suspect]
     Active Substance: IBUPROFEN
     Route: 065
  2. CIPROFLOXACIN. [Suspect]
     Active Substance: CIPROFLOXACIN
     Indication: URINARY TRACT INFECTION
     Route: 048
     Dates: start: 20120405, end: 201204

REACTIONS (11)
  - Liver disorder [Not Recovered/Not Resolved]
  - Ligament injury [Recovered/Resolved]
  - Erythema [Not Recovered/Not Resolved]
  - Burning sensation [Recovered/Resolved]
  - Neuropathy peripheral [Not Recovered/Not Resolved]
  - Tendon pain [Recovered/Resolved]
  - Gait disturbance [Recovered/Resolved]
  - Arthralgia [Recovered/Resolved]
  - Pruritus [Not Recovered/Not Resolved]
  - Joint dislocation [Recovered/Resolved]
  - Drug hypersensitivity [Recovered/Resolved]

NARRATIVE: CASE EVENT DATE: 201204
